FAERS Safety Report 17262322 (Version 2)
Quarter: 2021Q1

REPORT INFORMATION
  Report Type: Report from Study
  Country: None (occurrence: US)
  Receive Date: 20200113
  Receipt Date: 20210112
  Transmission Date: 20210419
  Serious: Yes (Death, Hospitalization, Other)
  Sender: FDA-Public Use
  Company Number: US-INSMED, INC.-US-INS-19-03913

PATIENT
  Age: 76 Year
  Sex: Female

DRUGS (7)
  1. ZOLOFT [Concomitant]
     Active Substance: SERTRALINE HYDROCHLORIDE
     Dates: start: 2019
  2. ZOLOFT [Concomitant]
     Active Substance: SERTRALINE HYDROCHLORIDE
     Dates: start: 20191206
  3. ANTIBIOTICS [Concomitant]
     Active Substance: UNSPECIFIED INGREDIENT
  4. ARIKAYCE [Suspect]
     Active Substance: AMIKACIN
     Indication: MYCOBACTERIUM AVIUM COMPLEX INFECTION
     Route: 055
     Dates: start: 20190319, end: 2019
  5. ZOLOFT [Concomitant]
     Active Substance: SERTRALINE HYDROCHLORIDE
     Indication: ANXIETY
  6. ARIKAYCE [Suspect]
     Active Substance: AMIKACIN
     Route: 055
     Dates: start: 20190402, end: 2019
  7. ANTIBIOTICS [Concomitant]
     Active Substance: UNSPECIFIED INGREDIENT
     Indication: MYCOBACTERIUM AVIUM COMPLEX INFECTION

REACTIONS (8)
  - Fatigue [Unknown]
  - Depression [Not Recovered/Not Resolved]
  - Off label use [Unknown]
  - Death [Fatal]
  - Anxiety [Not Recovered/Not Resolved]
  - Loss of personal independence in daily activities [Not Recovered/Not Resolved]
  - Psychotic disorder [Not Recovered/Not Resolved]
  - Mental disorder [Not Recovered/Not Resolved]

NARRATIVE: CASE EVENT DATE: 2019
